FAERS Safety Report 4524585-X (Version None)
Quarter: 2004Q4

REPORT INFORMATION
  Report Type: 
  Country: None (occurrence: None)
  Receive Date: 20041117
  Receipt Date: 20040623
  Transmission Date: 20050328
  Serious: Yes (Hospitalization)
  Sender: FDA-Public Use
  Company Number: US-JNJFOC-20040606816

PATIENT
  Sex: Male

DRUGS (2)
  1. LEVAQUIN [Suspect]
     Indication: PNEUMONIA
     Dosage: 500 MG
     Dates: start: 20040604, end: 20040618
  2. CLINDAMYCIN (CLINDAMYCIN) [Concomitant]

REACTIONS (1)
  - CLOSTRIDIAL INFECTION [None]
